FAERS Safety Report 10777993 (Version 3)
Quarter: 2016Q1

REPORT INFORMATION
  Report Type: Report from Study
  Country: US (occurrence: US)
  Receive Date: 20150209
  Receipt Date: 20160205
  Transmission Date: 20160525
  Serious: No
  Sender: FDA-Public Use
  Company Number: US-AMGEN-USASL2015000896

PATIENT
  Age: 51 Year
  Sex: Female

DRUGS (93)
  1. NEUPOGEN [Suspect]
     Active Substance: FILGRASTIM
     Dosage: 300 MUG, UNK
     Route: 058
     Dates: start: 20081111
  2. NEULASTA [Suspect]
     Active Substance: PEGFILGRASTIM
     Dosage: 6 MG, UNK
     Route: 058
     Dates: start: 20081002
  3. AVASTIN [Suspect]
     Active Substance: BEVACIZUMAB
     Indication: METASTASES TO BREAST
     Dosage: 1000 MG, 1 IN 2 WK
     Route: 042
     Dates: start: 20060723
  4. AVASTIN [Suspect]
     Active Substance: BEVACIZUMAB
     Dosage: 1000 MG, UNK
     Route: 042
     Dates: start: 20080723
  5. ALOXI [Concomitant]
     Active Substance: PALONOSETRON HYDROCHLORIDE
     Dosage: 0.25 MG, UNK
     Route: 042
  6. ARANESP [Concomitant]
     Active Substance: DARBEPOETIN ALFA
     Dosage: 300 MUG, UNK
     Route: 058
     Dates: start: 20081022
  7. ARANESP [Concomitant]
     Active Substance: DARBEPOETIN ALFA
     Dosage: 300 UNK, UNK
     Route: 058
     Dates: start: 20081029
  8. ARANESP [Concomitant]
     Active Substance: DARBEPOETIN ALFA
     Dosage: 300 MG, UNK
     Route: 058
     Dates: start: 20081126
  9. TAXOTERE [Concomitant]
     Active Substance: DOCETAXEL
     Dosage: 1000 MG, UNK
     Route: 042
     Dates: start: 20081105
  10. NEULASTA [Suspect]
     Active Substance: PEGFILGRASTIM
     Dosage: 6 MG, UNK
     Route: 058
     Dates: start: 20081023
  11. AVASTIN [Suspect]
     Active Substance: BEVACIZUMAB
     Dosage: 1000 MG, UNK
     Route: 042
     Dates: start: 20080924
  12. AVASTIN [Suspect]
     Active Substance: BEVACIZUMAB
     Dosage: 1000 MG, UNK
     Route: 042
     Dates: start: 20081203
  13. ZOMETA [Concomitant]
     Active Substance: ZOLEDRONIC ACID
     Dosage: 4 MG, UNK
     Route: 042
     Dates: start: 20080813
  14. LEUCOVORIN                         /00566702/ [Concomitant]
     Active Substance: LEUCOVORIN
     Dosage: UNK
  15. NEUPOGEN [Suspect]
     Active Substance: FILGRASTIM
     Dosage: 300 MUG, UNK
     Route: 058
     Dates: start: 20081208
  16. AVASTIN [Suspect]
     Active Substance: BEVACIZUMAB
     Dosage: 1000 MG, UNK
     Route: 042
     Dates: start: 20081008
  17. CYTOXAN [Concomitant]
     Active Substance: CYCLOPHOSPHAMIDE
     Dosage: UNK
  18. GEMZAR [Concomitant]
     Active Substance: GEMCITABINE HYDROCHLORIDE
     Dosage: 2000 MG, UNK
     Route: 042
     Dates: start: 20080730
  19. GEMZAR [Concomitant]
     Active Substance: GEMCITABINE HYDROCHLORIDE
     Dosage: 1200 MG, UNK
     Route: 042
     Dates: start: 20080903
  20. GEMZAR [Concomitant]
     Active Substance: GEMCITABINE HYDROCHLORIDE
     Dosage: 1200 UNK, UNK
     Route: 042
     Dates: start: 20080924
  21. GEMZAR [Concomitant]
     Active Substance: GEMCITABINE HYDROCHLORIDE
     Dosage: 1200 MG, UNK
     Route: 042
     Dates: start: 20081203
  22. ARANESP [Concomitant]
     Active Substance: DARBEPOETIN ALFA
     Dosage: 200 MUG, UNK
     Route: 058
     Dates: start: 20080910
  23. ARANESP [Concomitant]
     Active Substance: DARBEPOETIN ALFA
     Dosage: 300 MUG, UNK
     Route: 058
     Dates: start: 20081112
  24. NEULASTA [Suspect]
     Active Substance: PEGFILGRASTIM
     Indication: PRODUCT USED FOR UNKNOWN INDICATION
     Dosage: 6 MG, UNK
     Route: 058
     Dates: start: 20080730
  25. AVASTIN [Suspect]
     Active Substance: BEVACIZUMAB
     Dosage: 1000 MG, UNK
     Route: 042
     Dates: start: 20080820
  26. AVASTIN [Suspect]
     Active Substance: BEVACIZUMAB
     Dosage: 1000 MG, UNK
     Route: 042
     Dates: start: 20080903
  27. COUMADIN [Concomitant]
     Active Substance: WARFARIN SODIUM
     Dosage: 5 MG, 1 IN 1 D
  28. GEMZAR [Concomitant]
     Active Substance: GEMCITABINE HYDROCHLORIDE
     Dosage: 1200 MG, UNK
     Route: 042
     Dates: start: 20081015
  29. GEMZAR [Concomitant]
     Active Substance: GEMCITABINE HYDROCHLORIDE
     Dosage: 1200 MG, UNK
     Route: 042
     Dates: start: 20081022
  30. GEMZAR [Concomitant]
     Active Substance: GEMCITABINE HYDROCHLORIDE
     Dosage: 30 MG, UNK
     Route: 042
     Dates: start: 20081230
  31. ZOMETA [Concomitant]
     Active Substance: ZOLEDRONIC ACID
     Dosage: 4 MG, UNK
     Route: 042
     Dates: start: 20081105
  32. ZOMETA [Concomitant]
     Active Substance: ZOLEDRONIC ACID
     Dosage: 4 MG, UNK
     Route: 042
     Dates: start: 20081203
  33. ARANESP [Concomitant]
     Active Substance: DARBEPOETIN ALFA
     Dosage: 300 MUG, UNK
     Route: 058
     Dates: start: 20081105
  34. LASIX [Concomitant]
     Active Substance: FUROSEMIDE
     Dosage: 40 MG, UNK
     Route: 042
  35. TAXOTERE [Concomitant]
     Active Substance: DOCETAXEL
     Dosage: 100 MG, UNK
     Route: 042
     Dates: start: 20080903
  36. TAXOTERE [Concomitant]
     Active Substance: DOCETAXEL
     Dosage: 1000 MG, UNK
     Route: 042
     Dates: start: 20081203
  37. NEUPOGEN [Suspect]
     Active Substance: FILGRASTIM
     Dosage: 300 UNK, UNK
     Route: 058
     Dates: start: 20080725
  38. NEUPOGEN [Suspect]
     Active Substance: FILGRASTIM
     Dosage: 300 MUG, UNK
     Route: 058
     Dates: start: 20080926
  39. NEUPOGEN [Suspect]
     Active Substance: FILGRASTIM
     Dosage: 300 MUG, UNK
     Route: 058
     Dates: start: 20081017
  40. NEUPOGEN [Suspect]
     Active Substance: FILGRASTIM
     Dosage: 300 MUG, UNK
     Route: 058
     Dates: start: 20081209
  41. NEUPOGEN [Suspect]
     Active Substance: FILGRASTIM
     Dosage: 300 MUG, 1 IN 1 D
     Route: 058
     Dates: start: 20081204
  42. NEUPOGEN [Suspect]
     Active Substance: FILGRASTIM
     Dosage: 300 MUG, UNK
     Route: 058
     Dates: start: 20081209
  43. NEULASTA [Suspect]
     Active Substance: PEGFILGRASTIM
     Dosage: 6 MG, 1 IN 1 D
     Route: 058
     Dates: start: 20081230
  44. GEMZAR [Concomitant]
     Active Substance: GEMCITABINE HYDROCHLORIDE
     Dosage: 1000 MG, UNK
     Route: 042
     Dates: start: 20081223
  45. ZOMETA [Concomitant]
     Active Substance: ZOLEDRONIC ACID
     Dosage: 4 MG, UNK
     Route: 042
     Dates: start: 20080711
  46. VANCOMYCIN [Concomitant]
     Active Substance: VANCOMYCIN
     Dosage: 1 G, UNK
     Route: 042
  47. TAXOTERE [Concomitant]
     Active Substance: DOCETAXEL
     Dosage: 100 MG, UNK
     Route: 042
     Dates: start: 20080924
  48. TAXOTERE [Concomitant]
     Active Substance: DOCETAXEL
     Dosage: 100 MG, UNK
     Route: 042
     Dates: start: 20081015
  49. TAXOTERE [Concomitant]
     Active Substance: DOCETAXEL
     Dosage: 80 MG, UNK
     Route: 042
     Dates: start: 20081223
  50. NEUPOGEN [Suspect]
     Active Substance: FILGRASTIM
     Dosage: 300 MUG, UNK
     Route: 058
     Dates: start: 20080728
  51. NEUPOGEN [Suspect]
     Active Substance: FILGRASTIM
     Dosage: 300 UNK, UNK
     Route: 058
     Dates: start: 20080929
  52. NEUPOGEN [Suspect]
     Active Substance: FILGRASTIM
     Dosage: 300 MUG, UNK
     Route: 058
     Dates: start: 20081110
  53. NEULASTA [Suspect]
     Active Substance: PEGFILGRASTIM
     Dosage: 6 MG, 1 IN 1 D
     Route: 058
     Dates: start: 20081210
  54. AVASTIN [Suspect]
     Active Substance: BEVACIZUMAB
     Dosage: 1000 MG, UNK
     Route: 042
     Dates: start: 20080808
  55. ADRIAMYCIN [Concomitant]
     Active Substance: DOXORUBICIN HYDROCHLORIDE
     Dosage: UNK
  56. GEMZAR [Concomitant]
     Active Substance: GEMCITABINE HYDROCHLORIDE
     Dosage: 2000 MG, UNK
     Route: 042
     Dates: start: 20080723
  57. GEMZAR [Concomitant]
     Active Substance: GEMCITABINE HYDROCHLORIDE
     Dosage: 1000 MG, UNK
     Route: 042
     Dates: start: 20080813
  58. ARANESP [Concomitant]
     Active Substance: DARBEPOETIN ALFA
     Dosage: 200 MUG, UNK
     Route: 058
     Dates: start: 20080903
  59. ARANESP [Concomitant]
     Active Substance: DARBEPOETIN ALFA
     Dosage: UNK
     Route: 058
     Dates: start: 20080917
  60. ARANESP [Concomitant]
     Active Substance: DARBEPOETIN ALFA
     Dosage: 200 UNK, UNK
     Route: 058
     Dates: start: 20080924
  61. ARANESP [Concomitant]
     Active Substance: DARBEPOETIN ALFA
     Dosage: 300 MUG, 1 IN 1 D
     Route: 058
     Dates: start: 20081217
  62. DEXAMETHASONE. [Concomitant]
     Active Substance: DEXAMETHASONE
     Dosage: 20 MG, UNK
     Route: 042
  63. TAXOTERE [Concomitant]
     Active Substance: DOCETAXEL
     Dosage: 120 MG, UNK
     Route: 042
     Dates: start: 20080723
  64. TAXOTERE [Concomitant]
     Active Substance: DOCETAXEL
     Dosage: 120 MG, UNK
     Route: 042
     Dates: start: 20080813
  65. TAXOTERE [Concomitant]
     Active Substance: DOCETAXEL
     Dosage: 120 MG, UNK
     Route: 042
  66. NEUPOGEN [Suspect]
     Active Substance: FILGRASTIM
     Dosage: 480 MUG, UNK
     Route: 058
     Dates: start: 20080815
  67. NEUPOGEN [Suspect]
     Active Substance: FILGRASTIM
     Dosage: 300 MUG, UNK
     Route: 058
     Dates: start: 20080925
  68. NEUPOGEN [Suspect]
     Active Substance: FILGRASTIM
     Dosage: 300 MUG, UNK
     Route: 058
     Dates: start: 20081016
  69. NEUPOGEN [Suspect]
     Active Substance: FILGRASTIM
     Dosage: 300 MUG, UNK
     Route: 058
     Dates: start: 20081107
  70. NEUPOGEN [Suspect]
     Active Substance: FILGRASTIM
     Dosage: 300 MUG, UNK
     Route: 058
     Dates: start: 20080904
  71. NEUPOGEN [Suspect]
     Active Substance: FILGRASTIM
     Dosage: 300 MUG, UNK
     Route: 058
     Dates: start: 20080905
  72. AVASTIN [Suspect]
     Active Substance: BEVACIZUMAB
     Dosage: 1000 MG, UNK
     Route: 042
     Dates: start: 20081105
  73. GEMZAR [Concomitant]
     Active Substance: GEMCITABINE HYDROCHLORIDE
     Dosage: 1000 MG, UNK
     Route: 042
     Dates: start: 20081105
  74. GEMZAR [Concomitant]
     Active Substance: GEMCITABINE HYDROCHLORIDE
     Dosage: 1200 MG, UNK
     Route: 042
     Dates: start: 20081210
  75. ZOMETA [Concomitant]
     Active Substance: ZOLEDRONIC ACID
     Dosage: 4 MG, UNK
     Route: 042
     Dates: start: 20080910
  76. 5-FLUOROURACIL                     /00098801/ [Concomitant]
     Active Substance: FLUOROURACIL
     Dosage: UNK
  77. NEUPOGEN [Suspect]
     Active Substance: FILGRASTIM
     Indication: PRODUCT USED FOR UNKNOWN INDICATION
     Dosage: 300 MCG, ONCE DAILY
     Route: 058
     Dates: start: 20080724
  78. NEUPOGEN [Suspect]
     Active Substance: FILGRASTIM
     Dosage: 480 MUG, UNK
     Route: 058
     Dates: start: 20080814
  79. NEUPOGEN [Suspect]
     Active Substance: FILGRASTIM
     Dosage: 300 MUG, UNK
     Route: 058
     Dates: start: 20081020
  80. NEULASTA [Suspect]
     Active Substance: PEGFILGRASTIM
     Dosage: 6 MG, UNK
     Route: 058
     Dates: start: 20080821
  81. NEULASTA [Suspect]
     Active Substance: PEGFILGRASTIM
     Dosage: 6 MG, UNK
     Route: 058
     Dates: start: 20080911
  82. NEULASTA [Suspect]
     Active Substance: PEGFILGRASTIM
     Dosage: 6 MG, UNK
     Route: 058
     Dates: start: 20081022
  83. NEULASTA [Suspect]
     Active Substance: PEGFILGRASTIM
     Dosage: 20 MUG, UNK
     Route: 058
     Dates: start: 20081119
  84. AVASTIN [Suspect]
     Active Substance: BEVACIZUMAB
     Dosage: 1000 MG, UNK
     Route: 042
     Dates: start: 20081022
  85. GEMZAR [Concomitant]
     Active Substance: GEMCITABINE HYDROCHLORIDE
     Dosage: 1500 MG, UNK
     Route: 042
     Dates: start: 20080820
  86. GEMZAR [Concomitant]
     Active Substance: GEMCITABINE HYDROCHLORIDE
     Dosage: 1200 MG, UNK
     Route: 042
     Dates: start: 20081001
  87. ZOMETA [Concomitant]
     Active Substance: ZOLEDRONIC ACID
     Dosage: 4 MG, UNK
     Route: 042
     Dates: start: 20081008
  88. ARANESP [Concomitant]
     Active Substance: DARBEPOETIN ALFA
     Dosage: 200 MUG, UNK
     Route: 058
     Dates: start: 20081001
  89. ARANESP [Concomitant]
     Active Substance: DARBEPOETIN ALFA
     Dosage: 200 MUG, UNK
     Route: 058
     Dates: start: 20081008
  90. ARANESP [Concomitant]
     Active Substance: DARBEPOETIN ALFA
     Dosage: 200 MUG, UNK
     Route: 058
     Dates: start: 20081015
  91. PROCRIT [Concomitant]
     Active Substance: ERYTHROPOIETIN
     Dosage: 40 MG, UNK
  92. NEUPOGEN [Suspect]
     Active Substance: FILGRASTIM
     Dosage: 300 MUG, UNK
     Route: 058
     Dates: start: 20080908
  93. NEUPOGEN [Suspect]
     Active Substance: FILGRASTIM
     Dosage: 300 MUG, UNK
     Route: 058
     Dates: start: 20081106

REACTIONS (10)
  - Alopecia [Unknown]
  - Constipation [Unknown]
  - Dyspnoea [Unknown]
  - Purulent discharge [Unknown]
  - Peripheral swelling [Unknown]
  - Erythema [Unknown]
  - Oesophagitis [Unknown]
  - Diarrhoea [Unknown]
  - Fatigue [Unknown]
  - Nausea [Unknown]
